FAERS Safety Report 10092717 (Version 1)
Quarter: 2014Q2

REPORT INFORMATION
  Report Type: Spontaneous
  Country: US (occurrence: US)
  Receive Date: 20140421
  Receipt Date: 20140421
  Transmission Date: 20141212
  Serious: No
  Sender: FDA-Public Use
  Company Number: US-SANOFI-AVENTIS-2013SA064542

PATIENT
  Age: 50 Year
  Sex: Male

DRUGS (2)
  1. ALLEGRA [Suspect]
     Indication: SKIN DISORDER
     Route: 048
     Dates: start: 201204
  2. VISTARIL [Concomitant]

REACTIONS (4)
  - Dry skin [Unknown]
  - Insomnia [Unknown]
  - Extra dose administered [Unknown]
  - Wrong technique in drug usage process [Unknown]
